FAERS Safety Report 5150565-X (Version None)
Quarter: 2006Q4

REPORT INFORMATION
  Report Type: 
  Country: None (occurrence: None)
  Receive Date: 20061114
  Receipt Date: 20060902
  Transmission Date: 20070319
  Serious: Yes (Other)
  Sender: FDA-Public Use
  Company Number: SY-ELI_LILLY_AND_COMPANY-SY200609000387

PATIENT
  Age: 53 Year
  Sex: Female

DRUGS (2)
  1. RALOXIFENE HCL [Suspect]
     Indication: OSTEOPOROSIS
     Dosage: 60 MG, DAILY (1/D)
     Route: 048
     Dates: start: 20060826, end: 20060830
  2. LOPRESSOR [Concomitant]
     Indication: HYPERTENSION

REACTIONS (3)
  - PAIN [None]
  - SKIN DISCOLOURATION [None]
  - SKIN DISORDER [None]
